FAERS Safety Report 13265928 (Version 2)
Quarter: 2017Q1

REPORT INFORMATION
  Report Type: Report from Study
  Country: KR (occurrence: KR)
  Receive Date: 20170223
  Receipt Date: 20170228
  Transmission Date: 20170428
  Serious: Yes (Hospitalization)
  Sender: FDA-Public Use
  Company Number: KR-EISAI MEDICAL RESEARCH-EC-2017-025130

PATIENT
  Age: 65 Year
  Sex: Female
  Weight: 60 kg

DRUGS (9)
  1. DAIMIT [Concomitant]
  2. MUTERAN [Concomitant]
     Active Substance: ACETYLCYSTEINE
  3. ENTELON [Concomitant]
  4. VALTREP [Concomitant]
  5. HALAVEN [Suspect]
     Active Substance: ERIBULIN MESYLATE
     Indication: BREAST CANCER
     Route: 041
     Dates: start: 20161124, end: 20161124
  6. FEROBA [Concomitant]
     Active Substance: FERROUS SULFATE\PROTEASE
  7. TANTUM [Concomitant]
     Active Substance: BENZYDAMINE HYDROCHLORIDE
  8. TABACTAM [Concomitant]
  9. LASIX [Concomitant]
     Active Substance: FUROSEMIDE

REACTIONS (1)
  - Pneumonia [Recovered/Resolved]

NARRATIVE: CASE EVENT DATE: 20161125
